FAERS Safety Report 14147105 (Version 1)
Quarter: 2017Q4

REPORT INFORMATION
  Report Type: Spontaneous
  Country: FR (occurrence: FR)
  Receive Date: 20171031
  Receipt Date: 20171031
  Transmission Date: 20180321
  Serious: Yes (Hospitalization, Other)
  Sender: FDA-Public Use
  Company Number: FR-TEVA-820797ISR

PATIENT
  Age: 59 Year
  Sex: Female

DRUGS (4)
  1. SOLUPRED [Suspect]
     Active Substance: PREDNISOLONE
     Indication: EFFUSION
     Route: 048
     Dates: start: 20170602, end: 20170704
  2. CISPLATINE [Concomitant]
     Active Substance: CISPLATIN
     Route: 065
     Dates: start: 20170502
  3. DOXORUBICINE [Concomitant]
     Active Substance: DOXORUBICIN
     Route: 065
     Dates: start: 20170502
  4. VOLTARENPLAST 1% [Suspect]
     Active Substance: DICLOFENAC SODIUM
     Indication: MUSCULOSKELETAL PAIN
     Dosage: 2 DOSAGE FORMS DAILY;
     Route: 003
     Dates: start: 20170726, end: 20170808

REACTIONS (2)
  - Product use in unapproved indication [Unknown]
  - Respiratory tract infection fungal [Recovered/Resolved]

NARRATIVE: CASE EVENT DATE: 20170726
